FAERS Safety Report 9700136 (Version 3)
Quarter: 2013Q4

REPORT INFORMATION
  Report Type: Report from Study
  Country: FR (occurrence: FR)
  Receive Date: 20131121
  Receipt Date: 20131129
  Transmission Date: 20140711
  Serious: Yes (Hospitalization)
  Sender: FDA-Public Use
  Company Number: FR-ROCHE-1269657

PATIENT
  Age: 33 Year
  Sex: Female
  Weight: 61 kg

DRUGS (10)
  1. BLINDED TOCILIZUMAB [Suspect]
     Indication: SCLERODERMA
     Dosage: DATE OF MOST RECENT DOSE OF BLINDED STUDY DRUG PRIOR TO AE ONSET : 07/AUG/2013.
     Route: 058
     Dates: start: 20120912
  2. TOCILIZUMAB [Suspect]
     Indication: SCLERODERMA
     Dosage: LAST DOSE (162 MG) PRIOR TO SAE: 21/AUG/2013
     Route: 058
     Dates: start: 20130812
  3. BI-TILDIEM [Concomitant]
     Indication: RAYNAUD^S PHENOMENON
     Route: 048
     Dates: start: 20110701, end: 201301
  4. STROMECTOL [Concomitant]
     Indication: DIARRHOEA
     Route: 048
     Dates: start: 20120801
  5. IXPRIM [Concomitant]
     Indication: ARTHRALGIA
     Route: 048
     Dates: start: 20120701
  6. DAFALGAN CODEINE [Concomitant]
     Indication: HEADACHE
     Route: 048
     Dates: start: 20121031
  7. DEXERYL TOPICAL [Concomitant]
     Indication: DRY SKIN
     Route: 061
     Dates: start: 20120307
  8. LOXEN [Concomitant]
     Indication: SKIN ULCER
     Route: 048
     Dates: start: 20130619
  9. LOXEN [Concomitant]
     Route: 048
     Dates: start: 20130903
  10. ASPEGIC (FRANCE) [Concomitant]
     Indication: SKIN ULCER
     Route: 048
     Dates: start: 20130424

REACTIONS (2)
  - Tuberculosis [Recovered/Resolved]
  - Back pain [Recovered/Resolved]
